FAERS Safety Report 4781719-X (Version None)
Quarter: 2005Q3

REPORT INFORMATION
  Report Type: 
  Country: None (occurrence: None)
  Receive Date: 20050927
  Receipt Date: 20050914
  Transmission Date: 20060218
  Serious: Yes (Other)
  Sender: FDA-Public Use
  Company Number: 2005127789

PATIENT
  Sex: Female

DRUGS (1)
  1. NASALCROM (CROMYLN SODIUM) [Suspect]
     Indication: SINUS DISORDER
     Dosage: COUPLE OF TIMES, NASAL
     Route: 045
     Dates: start: 20050601, end: 20050601

REACTIONS (3)
  - DRUG HYPERSENSITIVITY [None]
  - MALAISE [None]
  - POOR QUALITY DRUG ADMINISTERED [None]
